FAERS Safety Report 17836276 (Version 1)
Quarter: 2020Q2

REPORT INFORMATION
  Report Type: Spontaneous
  Country: FR (occurrence: FR)
  Receive Date: 20200528
  Receipt Date: 20200528
  Transmission Date: 20200714
  Serious: Yes (Death, Other)
  Sender: FDA-Public Use
  Company Number: FR-009507513-2005FRA008626

PATIENT
  Age: 47 Year
  Sex: Male

DRUGS (2)
  1. KEYTRUDA [Suspect]
     Active Substance: PEMBROLIZUMAB
     Indication: NON-SMALL CELL LUNG CANCER
     Dosage: 12 CYCLES
     Dates: start: 20170330
  2. ANTI-DLL4/ANTI-VEGF BISPECIFIC MONOCLONAL ANTIBODY [Concomitant]
     Indication: NON-SMALL CELL LUNG CANCER
     Dosage: UNK

REACTIONS (1)
  - Limbic encephalitis [Fatal]

NARRATIVE: CASE EVENT DATE: 201712
